FAERS Safety Report 6006913-1 (Version None)
Quarter: 2008Q4

REPORT INFORMATION
  Report Type: 
  Country: None (occurrence: None)
  Receive Date: 20081217
  Receipt Date: 20081208
  Transmission Date: 20090506
  Serious: Yes (Hospitalization)
  Sender: FDA-Public Use
  Company Number: PHBS2008IN06633

PATIENT
  Age: 23 Year
  Sex: Female

DRUGS (13)
  1. DICLOFENAC SODIUM [Suspect]
     Indication: ABDOMINAL PAIN
     Dosage: UNK
     Route: 030
  2. METOCLOPRAMIDE HYDROCHLORIDE [Suspect]
     Indication: VOMITING
  3. PHENYTOIN [Suspect]
     Dosage: 300 MG HS
     Route: 048
  4. PANTOPRAZOLE SODIUM [Concomitant]
     Dosage: 40 MG, QD
     Route: 042
  5. DROTAVERINE [Concomitant]
     Dosage: 40 MG, TID
     Route: 030
  6. DIAZEPAM [Concomitant]
     Indication: CONVULSION
     Route: 042
  7. GABAPENTIN [Concomitant]
     Dosage: 300 MG, TID
  8. PYRIDOXINE HCL [Concomitant]
     Dosage: 40 MG, TID
  9. DEXTROSE [Concomitant]
     Dosage: 400 MG/DAY
  10. PENTAZOCINE LACTATE [Concomitant]
     Route: 042
  11. PROMETHAZINE [Concomitant]
  12. PROPRANOLOL [Concomitant]
     Dosage: 40 MG, QID
  13. PROPRANOLOL [Concomitant]
     Dosage: 40 MG, BID

REACTIONS (17)
  - ABDOMINAL PAIN [None]
  - AREFLEXIA [None]
  - BLOOD PRESSURE INCREASED [None]
  - BLOOD SODIUM DECREASED [None]
  - CHEST PAIN [None]
  - GRAND MAL CONVULSION [None]
  - HEART RATE DECREASED [None]
  - HYPOTONIA [None]
  - INCOHERENT [None]
  - LOSS OF CONSCIOUSNESS [None]
  - PALLOR [None]
  - PORPHYRIA [None]
  - PUPILLARY REFLEX IMPAIRED [None]
  - RESPIRATORY RATE DECREASED [None]
  - SOMNOLENCE [None]
  - UNRESPONSIVE TO STIMULI [None]
  - VOMITING [None]
